FAERS Safety Report 7159108-2 (Version None)
Quarter: 2010Q4

REPORT INFORMATION
  Report Type: 
  Country: None (occurrence: None)
  Receive Date: 20101214
  Receipt Date: 20101208
  Transmission Date: 20110411
  Serious: Yes (Death)
  Sender: FDA-Public Use
  Company Number: US-CELGENEUS-163-21880-10120991

PATIENT
  Age: 79 Year
  Sex: Female

DRUGS (11)
  1. REVLIMID [Suspect]
     Indication: MULTIPLE MYELOMA
     Route: 048
     Dates: start: 20091123, end: 20091221
  2. VELCADE [Suspect]
     Route: 065
     Dates: start: 20100201
  3. CALCITRIOL [Concomitant]
     Route: 065
  4. MEGACE [Concomitant]
     Route: 065
  5. ZOFRAN [Concomitant]
     Route: 065
  6. PLAVIX [Concomitant]
     Route: 065
  7. COLACE [Concomitant]
     Route: 065
  8. VITAMIN D [Concomitant]
     Route: 065
  9. LACTULOSE [Concomitant]
     Route: 065
  10. LEVOTHROID [Concomitant]
     Route: 065
  11. ATENOLOL [Concomitant]
     Route: 065

REACTIONS (3)
  - DEATH [None]
  - LIGHT CHAIN DISEASE [None]
  - RENAL FAILURE [None]
